FAERS Safety Report 11404718 (Version 19)
Quarter: 2018Q1

REPORT INFORMATION
  Report Type: Spontaneous
  Country: US (occurrence: US)
  Receive Date: 20150821
  Receipt Date: 20180201
  Transmission Date: 20180508
  Serious: Yes (Death, Hospitalization, Other)
  Sender: FDA-Public Use
  Company Number: US-ACTELION PHARMACEUTICALS US, INC.-A-US2014-108895

PATIENT
  Age: 44 Year
  Sex: Female
  Weight: 58.96 kg

DRUGS (10)
  1. ASPIRIN. [Concomitant]
     Active Substance: ASPIRIN
  2. NEURONTIN [Concomitant]
     Active Substance: GABAPENTIN
  3. AMLODIPINE [Concomitant]
     Active Substance: AMLODIPINE BESYLATE
  4. VELETRI [Suspect]
     Active Substance: EPOPROSTENOL
     Indication: PULMONARY HYPERTENSION
     Dosage: 38 NG/KG, PER MIN
     Route: 042
     Dates: start: 20141118
  5. VELETRI [Suspect]
     Active Substance: EPOPROSTENOL
     Dosage: UNK
     Route: 042
  6. REVATIO [Concomitant]
     Active Substance: SILDENAFIL CITRATE
  7. XARELTO [Concomitant]
     Active Substance: RIVAROXABAN
  8. VELETRI [Suspect]
     Active Substance: EPOPROSTENOL
     Dosage: 35.6 NG/KG, PER MIN
     Route: 042
  9. VELETRI [Suspect]
     Active Substance: EPOPROSTENOL
     Dosage: 7.76 NG/KG, PER MIN
     Route: 042
     Dates: start: 20141118
  10. VELETRI [Suspect]
     Active Substance: EPOPROSTENOL
     Dosage: 34.2 NG/KG, PER MIN
     Route: 042

REACTIONS (24)
  - Walking aid user [Unknown]
  - Musculoskeletal pain [Unknown]
  - Weight decreased [Unknown]
  - Headache [Unknown]
  - Adrenal insufficiency [Unknown]
  - Nausea [Unknown]
  - Vomiting [Unknown]
  - Clostridium difficile colitis [Unknown]
  - Pain in extremity [Unknown]
  - Chest pain [Unknown]
  - Diarrhoea [Unknown]
  - Neuropathy peripheral [Unknown]
  - Clostridium difficile infection [Unknown]
  - Nasopharyngitis [Unknown]
  - Fall [Unknown]
  - Death [Fatal]
  - Decreased appetite [Unknown]
  - Vaginal haemorrhage [Unknown]
  - Weight fluctuation [Unknown]
  - Angioedema [Unknown]
  - Asthenia [Unknown]
  - Dyspnoea [Unknown]
  - Malaise [Unknown]
  - Dehydration [Unknown]

NARRATIVE: CASE EVENT DATE: 20141121
